FAERS Safety Report 10814936 (Version 1)
Quarter: 2015Q1

REPORT INFORMATION
  Report Type: Report from Study
  Country: US (occurrence: US)
  Receive Date: 20150218
  Receipt Date: 20150218
  Transmission Date: 20150721
  Serious: No
  Sender: FDA-Public Use
  Company Number: US-ABBVIE-14K-163-1279191-00

PATIENT
  Age: 36 Year
  Sex: Male

DRUGS (4)
  1. HUMIRA [Suspect]
     Active Substance: ADALIMUMAB
     Indication: COLITIS ULCERATIVE
     Dates: start: 20140715, end: 20140715
  2. HUMIRA [Suspect]
     Active Substance: ADALIMUMAB
     Dates: start: 20140729, end: 20140729
  3. SULFASALAZINE. [Concomitant]
     Active Substance: SULFASALAZINE
     Indication: INFLAMMATION
  4. HUMIRA [Suspect]
     Active Substance: ADALIMUMAB
     Dates: start: 20140812

REACTIONS (2)
  - Haemoglobin increased [Unknown]
  - Overdose [Unknown]

NARRATIVE: CASE EVENT DATE: 2014
